FAERS Safety Report 9702168 (Version 3)
Quarter: 2014Q1

REPORT INFORMATION
  Report Type: Spontaneous
  Country: DE (occurrence: DE)
  Receive Date: 20131121
  Receipt Date: 20140203
  Transmission Date: 20141002
  Serious: Yes (Hospitalization, Other)
  Sender: FDA-Public Use
  Company Number: DE-NOVOPROD-384011

PATIENT
  Age: 55 Year
  Sex: Male
  Weight: 82 kg

DRUGS (5)
  1. LEVEMIR [Suspect]
     Indication: TYPE 1 DIABETES MELLITUS
     Dosage: UNKNOWN
     Route: 058
     Dates: start: 20041109
  2. LEVEMIR [Suspect]
     Dosage: UNK
     Route: 058
  3. NOVORAPID [Suspect]
     Indication: TYPE 1 DIABETES MELLITUS
     Dosage: 17 IE, QD
     Route: 058
     Dates: start: 20070215
  4. EPROSARTAN [Concomitant]
     Indication: HYPERTENSION
     Dosage: UNK
     Route: 048
     Dates: start: 2003
  5. AGGRENOX [Concomitant]
     Indication: PRODUCT USED FOR UNKNOWN INDICATION
     Dosage: 2 DF, QD
     Route: 048
     Dates: start: 200907

REACTIONS (2)
  - Cerebrovascular accident [Recovered/Resolved]
  - Hypoglycaemia [Recovered/Resolved]
